FAERS Safety Report 10550777 (Version 1)
Quarter: 2014Q4

REPORT INFORMATION
  Report Type: Spontaneous
  Country: US (occurrence: None)
  Receive Date: 20141028
  Receipt Date: 20141028
  Transmission Date: 20150529
  Serious: Yes (Other)
  Sender: FDA-Public Use
  Company Number: None

PATIENT
  Age: 22 Year
  Sex: Male
  Weight: 74.84 kg

DRUGS (3)
  1. REGLAN [Suspect]
     Active Substance: METOCLOPRAMIDE HYDROCHLORIDE
     Indication: COLITIS
     Route: 042
     Dates: start: 20141022, end: 20141022
  2. REGLAN [Suspect]
     Active Substance: METOCLOPRAMIDE HYDROCHLORIDE
     Indication: MUSCLE SPASMS
     Route: 042
     Dates: start: 20141022, end: 20141022
  3. REGLAN [Suspect]
     Active Substance: METOCLOPRAMIDE HYDROCHLORIDE
     Indication: NAUSEA
     Route: 042
     Dates: start: 20141022, end: 20141022

REACTIONS (5)
  - Dyskinesia [None]
  - Agitation [None]
  - Paranoia [None]
  - Restlessness [None]
  - Muscle twitching [None]

NARRATIVE: CASE EVENT DATE: 20141022
